FAERS Safety Report 9639042 (Version 1)
Quarter: 2013Q4

REPORT INFORMATION
  Report Type: Report from Study
  Country: US (occurrence: US)
  Receive Date: 20131022
  Receipt Date: 20131022
  Transmission Date: 20140711
  Serious: No
  Sender: FDA-Public Use
  Company Number: US-ABBVIE-12P-163-0994832-00

PATIENT
  Age: 33 Year
  Sex: Female
  Weight: 88.98 kg

DRUGS (3)
  1. LUPRON DEPOT [Suspect]
     Indication: ENDOMETRIOSIS
     Dates: start: 201209
  2. METFORMIN HCL [Concomitant]
     Indication: POLYCYSTIC OVARIES
  3. METHYLDOPA [Concomitant]
     Indication: HYPERTENSION

REACTIONS (1)
  - Headache [Recovered/Resolved]
